FAERS Safety Report 8555224-9 (Version None)
Quarter: 2012Q3

REPORT INFORMATION
  Report Type: 
  Country: None (occurrence: None)
  Receive Date: 20120731
  Receipt Date: 20120723
  Transmission Date: 20120928
  Serious: No
  Sender: FDA-Public Use
  Company Number: US-009507513-1205USA00089

PATIENT

DRUGS (5)
  1. LIPITOR [Suspect]
     Dosage: 20 MG, QD
     Route: 048
  2. ZOCOR [Suspect]
     Dosage: 40 MG, QD
     Route: 048
  3. TRICOR [Concomitant]
     Dosage: 145 MG, QD
     Route: 048
  4. ASPIRIN [Concomitant]
     Dosage: 385 MG, QD
  5. DOXAZOSIN MESYLATE [Concomitant]
     Dosage: 2 MG, QD

REACTIONS (3)
  - FATIGUE [None]
  - DIZZINESS POSTURAL [None]
  - LAZINESS [None]
